FAERS Safety Report 6235620-5 (Version None)
Quarter: 2009Q2

REPORT INFORMATION
  Report Type: 
  Country: None (occurrence: None)
  Receive Date: 20090616
  Receipt Date: 20090603
  Transmission Date: 20091009
  Serious: Yes (Death, Other)
  Sender: FDA-Public Use
  Company Number: JPI-P-006987

PATIENT
  Age: 17 Year
  Sex: Male

DRUGS (4)
  1. FLUVOXAMINE MALEATE [Suspect]
     Indication: SOCIAL PHOBIA
     Dosage: (150 MG,1 D),ORAL ; (6000 MG,ONCE),ORAL
     Route: 048
     Dates: start: 20090408, end: 20090408
  2. FLUVOXAMINE MALEATE [Suspect]
     Indication: SOCIAL PHOBIA
     Dosage: (150 MG,1 D),ORAL ; (6000 MG,ONCE),ORAL
     Route: 048
     Dates: start: 20070101
  3. TANDOSPIRONE CITRATE [Suspect]
     Indication: SOCIAL PHOBIA
     Dosage: (60 MG,1 D),ORAL ; (1420 MG,ONCE),ORAL
     Route: 048
     Dates: start: 20090408, end: 20090408
  4. TANDOSPIRONE CITRATE [Suspect]
     Indication: SOCIAL PHOBIA
     Dosage: (60 MG,1 D),ORAL ; (1420 MG,ONCE),ORAL
     Route: 048
     Dates: start: 20070101

REACTIONS (13)
  - ALANINE AMINOTRANSFERASE INCREASED [None]
  - ASPARTATE AMINOTRANSFERASE INCREASED [None]
  - BLOOD CREATININE INCREASED [None]
  - BLOOD SODIUM INCREASED [None]
  - CARDIO-RESPIRATORY ARREST [None]
  - DRUG INTERACTION [None]
  - EPISTAXIS [None]
  - NASAL OEDEMA [None]
  - OVERDOSE [None]
  - SEROTONIN SYNDROME [None]
  - URINE OUTPUT DECREASED [None]
  - VOMITING [None]
  - WHITE BLOOD CELL COUNT INCREASED [None]
